FAERS Safety Report 19809764 (Version 1)
Quarter: 2021Q3

REPORT INFORMATION
  Report Type: Spontaneous
  Country: US (occurrence: US)
  Receive Date: 20210906
  Receipt Date: 20210906
  Transmission Date: 20211014
  Serious: Yes (Other)
  Sender: FDA-Public Use
  Company Number: None

PATIENT
  Age: 61 Year
  Sex: Female

DRUGS (20)
  1. HYDROXYCHLOR [Concomitant]
     Active Substance: HYDROXYCHLOROQUINE
  2. MULTIPLE VIT [Concomitant]
  3. PROMIDONE [Concomitant]
     Active Substance: PRIMIDONE
  4. VITAMIN B12 [Concomitant]
     Active Substance: CYANOCOBALAMIN
  5. DILAUDID [Concomitant]
     Active Substance: HYDROMORPHONE HYDROCHLORIDE
  6. CELECOXIB. [Concomitant]
     Active Substance: CELECOXIB
  7. TIZANIDINE. [Concomitant]
     Active Substance: TIZANIDINE
  8. ZOLIPIDEM [Concomitant]
  9. LEVOTHYROXIN [Concomitant]
     Active Substance: LEVOTHYROXINE
  10. BIOTIN [Concomitant]
     Active Substance: BIOTIN
  11. CALCIUM [Concomitant]
     Active Substance: CALCIUM
  12. DESVENLAFAX [Concomitant]
  13. BUPROPION. [Concomitant]
     Active Substance: BUPROPION
  14. MONTELUKAST [Concomitant]
     Active Substance: MONTELUKAST SODIUM
  15. VIT D [Concomitant]
     Active Substance: VITAMIN D NOS
  16. HUMIRA [Suspect]
     Active Substance: ADALIMUMAB
     Indication: RHEUMATOID ARTHRITIS
     Route: 058
     Dates: start: 20200214
  17. GRALISE [Concomitant]
     Active Substance: GABAPENTIN
  18. HYSINGLA ER [Concomitant]
     Active Substance: HYDROCODONE BITARTRATE
  19. FERRAPLUS 90 [Concomitant]
     Active Substance: ASCORBIC ACID\CYANOCOBALAMIN\DOCUSATE SODIUM\FOLIC ACID\IRON
  20. PROPRANOLOL [Concomitant]
     Active Substance: PROPRANOLOL HYDROCHLORIDE

REACTIONS (1)
  - Rheumatoid arthritis [None]

NARRATIVE: CASE EVENT DATE: 20210518
